FAERS Safety Report 5628151-4 (Version None)
Quarter: 2008Q1

REPORT INFORMATION
  Report Type: 
  Country: None (occurrence: None)
  Receive Date: 20080215
  Receipt Date: 20080207
  Transmission Date: 20080703
  Serious: Yes (Hospitalization)
  Sender: FDA-Public Use
  Company Number: ES-ELI_LILLY_AND_COMPANY-ES200802001624

PATIENT
  Age: 79 Year
  Sex: Male

DRUGS (5)
  1. FORTEO [Suspect]
     Indication: OSTEOPOROSIS
     Dosage: 20 UG, DAILY (1/D)
     Route: 058
     Dates: start: 20071001
  2. DISGREN [Concomitant]
     Indication: CARDIOVASCULAR DISORDER
  3. UROLOSIN [Concomitant]
     Indication: GENITAL DISORDER MALE
  4. CALCIUM [Concomitant]
  5. VOLTAREN                                /SCH/ [Concomitant]

REACTIONS (2)
  - FATIGUE [None]
  - LUNG NEOPLASM MALIGNANT [None]
